FAERS Safety Report 4518426-4 (Version None)
Quarter: 2004Q4

REPORT INFORMATION
  Report Type: 
  Country: None (occurrence: None)
  Receive Date: 20041102
  Receipt Date: 20040824
  Transmission Date: 20050328
  Serious: Yes (Other)
  Sender: FDA-Public Use
  Company Number: PHEH2004US09206

PATIENT
  Sex: Female

DRUGS (1)
  1. LESCOL XL [Suspect]
     Dosage: 80 MG QD
     Dates: start: 20030105, end: 20030301

REACTIONS (1)
  - ALANINE AMINOTRANSFERASE INCREASED [None]
